FAERS Safety Report 17132926 (Version 8)
Quarter: 2021Q3

REPORT INFORMATION
  Report Type: Report from Study
  Country: CO (occurrence: CO)
  Receive Date: 20191210
  Receipt Date: 20210929
  Transmission Date: 20211014
  Serious: Yes (Hospitalization, Other)
  Sender: FDA-Public Use
  Company Number: CO-ASTELLAS-2019US048640

PATIENT
  Age: 61 Year
  Sex: Male

DRUGS (9)
  1. TACROLIMUS. [Suspect]
     Active Substance: TACROLIMUS
     Indication: RENAL TRANSPLANT
     Dosage: 1.5 MG (1 CAPSULE OF 1MG + 1 CAPSULES OF 0.5 MG), ONCE DAILY
     Route: 048
     Dates: start: 20190427
  2. TACROLIMUS. [Suspect]
     Active Substance: TACROLIMUS
     Dosage: 8 MG (1 CAPSULE OF 5MG + 3 CAPSULES OF 1MG), ONCE DAILY
     Route: 048
     Dates: start: 20200824
  3. TACROLIMUS. [Suspect]
     Active Substance: TACROLIMUS
     Route: 048
     Dates: start: 20210418
  4. VALGANCICLOVIR. [Concomitant]
     Active Substance: VALGANCICLOVIR
     Indication: RENAL DISORDER
     Dosage: UNK UNK, UNKNOWN FREQ.
     Route: 048
     Dates: start: 20190927, end: 201911
  5. MYCOPHENOLATE [Concomitant]
     Active Substance: MYCOPHENOLIC ACID
     Indication: RENAL DISORDER
     Dosage: 720 MG (2 TABLETS), EVERY 12 HOURS
     Route: 048
     Dates: start: 20190927
  6. TRIMETHOPRIM. [Concomitant]
     Active Substance: TRIMETHOPRIM
     Indication: RENAL DISORDER
     Route: 048
     Dates: start: 20190927, end: 20191128
  7. AMLODIPINE [Concomitant]
     Active Substance: AMLODIPINE BESYLATE
     Indication: BLOOD PRESSURE ABNORMAL
     Route: 048
  8. OMEPRAZOLE. [Concomitant]
     Active Substance: OMEPRAZOLE
     Indication: GASTRITIS
     Route: 048
     Dates: start: 20190927
  9. PREDNISOLONE. [Concomitant]
     Active Substance: PREDNISOLONE
     Indication: BLOOD PRESSURE ABNORMAL
     Route: 048
     Dates: start: 20190927

REACTIONS (16)
  - Testicular swelling [Recovered/Resolved]
  - Condition aggravated [Not Recovered/Not Resolved]
  - Post procedural infection [Recovered/Resolved]
  - Anaemia [Recovered/Resolved]
  - Pneumonia fungal [Not Recovered/Not Resolved]
  - Diarrhoea [Unknown]
  - Prostatitis [Recovered/Resolved]
  - Urinary tract infection bacterial [Recovered/Resolved]
  - Histology abnormal [Not Recovered/Not Resolved]
  - Dyspepsia [Recovering/Resolving]
  - Obstructive airways disorder [Unknown]
  - Weight fluctuation [Not Recovered/Not Resolved]
  - Pneumonia [Recovered/Resolved]
  - Klebsiella infection [Recovered/Resolved]
  - Urinary retention [Recovered/Resolved]
  - Blood creatinine increased [Unknown]

NARRATIVE: CASE EVENT DATE: 20190927
